FAERS Safety Report 9431286 (Version 1)
Quarter: 2013Q3

REPORT INFORMATION
  Report Type: Spontaneous
  Country: US (occurrence: US)
  Receive Date: 20130730
  Receipt Date: 20130730
  Transmission Date: 20140515
  Serious: No
  Sender: FDA-Public Use
  Company Number: US-BAYER-2013-092020

PATIENT
  Age: 72 Year
  Sex: Male
  Weight: 95.24 kg

DRUGS (3)
  1. ALEVE TABLET [Suspect]
     Indication: ANALGESIC THERAPY
     Dosage: 2 DF, PRN
     Route: 048
     Dates: start: 1998
  2. OXYCODONE [Concomitant]
  3. NEURONTIN [Concomitant]

REACTIONS (1)
  - Extra dose administered [None]
